FAERS Safety Report 11166973 (Version 1)
Quarter: 2015Q2

REPORT INFORMATION
  Report Type: Report from Study
  Country: FR (occurrence: None)
  Receive Date: 20150603
  Receipt Date: 20150603
  Transmission Date: 20150821
  Serious: Yes (Other)
  Sender: FDA-Public Use
  Company Number: 2011DEPFR00078

PATIENT
  Age: 59 Year
  Sex: Female

DRUGS (2)
  1. DEPOCYT [Suspect]
     Active Substance: CYTARABINE
     Indication: METASTASES TO MENINGES
     Dosage: 50 MG EVERY 14 DAYS (1/-2) FOR 5 CYCLES, THEN EVERY 28 DAYS UNTIL PROGRESSION (GREQ PER PROTOCOL), INTRATHECAL
     Route: 037
     Dates: start: 20120330, end: 20120515
  2. VINORELBINE [Suspect]
     Active Substance: VINORELBINE\VINORELBINE TARTRATE
     Indication: NEOPLASM MALIGNANT
     Dosage: 100 MG, FREQUENCY
     Route: 048
     Dates: start: 20120409, end: 20120502

REACTIONS (2)
  - Febrile neutropenia [None]
  - Thrombocytopenia [None]

NARRATIVE: CASE EVENT DATE: 20120506
